FAERS Safety Report 13692438 (Version 1)
Quarter: 2017Q2

REPORT INFORMATION
  Report Type: Spontaneous
  Country: US (occurrence: US)
  Receive Date: 20170627
  Receipt Date: 20170627
  Transmission Date: 20170830
  Serious: No
  Sender: FDA-Public Use
  Company Number: US-TEVA-767876USA

PATIENT
  Sex: Female

DRUGS (1)
  1. LETROZOLE. [Suspect]
     Active Substance: LETROZOLE
     Indication: BREAST CANCER
     Route: 065
     Dates: start: 2015

REACTIONS (11)
  - Arthralgia [Unknown]
  - Feeling abnormal [Unknown]
  - Bone disorder [Unknown]
  - Depression [Unknown]
  - Premature ageing [Unknown]
  - Menopause [Unknown]
  - Pain [Unknown]
  - Bone pain [Unknown]
  - Alopecia [Unknown]
  - Gait disturbance [Unknown]
  - Musculoskeletal stiffness [Unknown]
